FAERS Safety Report 9548971 (Version 1)
Quarter: 2013Q3

REPORT INFORMATION
  Report Type: Spontaneous
  Country: US (occurrence: None)
  Receive Date: 20130719
  Receipt Date: 20130719
  Transmission Date: 20140515
  Serious: Yes (Other)
  Sender: FDA-Public Use
  Company Number: US-2013-10944

PATIENT
  Age: 75 Year
  Sex: 0

DRUGS (3)
  1. SAMSCA [Suspect]
     Indication: HYPONATRAEMIA
     Dosage: 15 MG MILLIGRAM(S), SINGLE, ORAL
     Route: 048
     Dates: start: 20120901
  2. FUROSEMIDE (FUROSEMIDE) [Concomitant]
  3. DEMECLOCYCLINE (DEMECYCLOCYCLINE) [Concomitant]

REACTIONS (1)
  - Rapid correction of hyponatraemia [None]
